FAERS Safety Report 13280423 (Version 2)
Quarter: 2017Q1

REPORT INFORMATION
  Report Type: Spontaneous
  Country: FR (occurrence: FR)
  Receive Date: 20170301
  Receipt Date: 20170302
  Transmission Date: 20170428
  Serious: Yes (Congenital Anomaly)
  Sender: FDA-Public Use
  Company Number: FR-009507513-1702FRA011220

PATIENT
  Age: 0 Day
  Sex: Male

DRUGS (2)
  1. TARDYFERON [Suspect]
     Active Substance: FERROUS SULFATE
     Route: 064
  2. AERIUS [Suspect]
     Active Substance: DESLORATADINE
     Indication: RHINITIS
     Dosage: 5 MG, 1 PER DAY
     Route: 064

REACTIONS (5)
  - Oesophageal atresia [Recovered/Resolved]
  - Cleft lip and palate [Not Recovered/Not Resolved]
  - Cryptorchism [Not Recovered/Not Resolved]
  - Ear malformation [Not Recovered/Not Resolved]
  - Hemivertebra [Not Recovered/Not Resolved]

NARRATIVE: CASE EVENT DATE: 20161214
